FAERS Safety Report 9381447 (Version 1)
Quarter: 2013Q3

REPORT INFORMATION
  Report Type: Spontaneous
  Country: US (occurrence: US)
  Receive Date: 20130703
  Receipt Date: 20130703
  Transmission Date: 20140515
  Serious: Yes (Other)
  Sender: FDA-Public Use
  Company Number: PHEH2013US013804

PATIENT
  Sex: Female

DRUGS (4)
  1. RECLAST [Suspect]
     Dosage: UNK 4 YEARS AGO
     Route: 042
  2. RECLAST [Suspect]
     Dosage: UNK ONCE A YEAR
     Route: 042
     Dates: start: 20130503
  3. CALCIUM WITH VITAMIN D [Concomitant]
     Dosage: UNK
  4. MULTIVITAMIN                       /00097801/ [Concomitant]
     Dosage: UNK

REACTIONS (14)
  - Paralysis [Unknown]
  - Hypoaesthesia [Unknown]
  - Gait disturbance [Unknown]
  - Fear [Unknown]
  - Thirst [Unknown]
  - Decreased appetite [Unknown]
  - Polydipsia [Unknown]
  - Somnolence [Unknown]
  - Headache [Unknown]
  - Fatigue [Unknown]
  - Pain in extremity [Unknown]
  - Arthralgia [Unknown]
  - Muscle spasms [Unknown]
  - Musculoskeletal stiffness [Unknown]
